FAERS Safety Report 4423751-1 (Version None)
Quarter: 2004Q3

REPORT INFORMATION
  Report Type: 
  Country: None (occurrence: None)
  Receive Date: 20040714
  Receipt Date: 20040416
  Transmission Date: 20050211
  Serious: Yes (Other)
  Sender: FDA-Public Use
  Company Number: HQWYE561221APR04

PATIENT
  Age: 78 Year
  Sex: Male
  Weight: 102.15 kg

DRUGS (3)
  1. ALAVERT [Suspect]
     Indication: LACRIMATION INCREASED
     Dosage: ^ 1 TABLET DAILY AS NEEDED^, ORAL
     Route: 048
     Dates: start: 20040301, end: 20040401
  2. ALAVERT [Suspect]
     Indication: POSTNASAL DRIP
     Dosage: ^ 1 TABLET DAILY AS NEEDED^, ORAL
     Route: 048
     Dates: start: 20040301, end: 20040401
  3. . [Concomitant]

REACTIONS (3)
  - FATIGUE [None]
  - HEADACHE [None]
  - SOMNOLENCE [None]
